FAERS Safety Report 4359381-X (Version None)
Quarter: 2004Q2

REPORT INFORMATION
  Report Type: 
  Country: None (occurrence: None)
  Receive Date: 20040512
  Receipt Date: 20040429
  Transmission Date: 20050107
  Serious: Yes (Other)
  Sender: FDA-Public Use
  Company Number: ATO-04-0373

PATIENT
  Age: 27 Year
  Sex: Male
  Weight: 97.0698 kg

DRUGS (9)
  1. TRISENOX [Suspect]
     Indication: ACUTE PROMYELOCYTIC LEUKAEMIA
     Dosage: (0.15 MG/KG, M-F), IVI
     Route: 042
     Dates: end: 20031118
  2. TRETINOIN [Suspect]
     Indication: ACUTE PROMYELOCYTIC LEUKAEMIA
     Dosage: 100 MG/DAY (50 MG, BID)
     Dates: end: 20031118
  3. LEVAQUIN [Concomitant]
  4. PEPCID [Concomitant]
  5. DARVON [Concomitant]
  6. COMPAZINE [Concomitant]
  7. POTASSIUM [Concomitant]
  8. SENOKOT [Concomitant]
  9. DIAMOX [Concomitant]

REACTIONS (3)
  - ELECTROCARDIOGRAM ST-T CHANGE [None]
  - SYNCOPE [None]
  - VENTRICULAR TACHYCARDIA [None]
